FAERS Safety Report 8977126 (Version 2)
Quarter: 2013Q4

REPORT INFORMATION
  Report Type: Report from Study
  Country: CA (occurrence: CA)
  Receive Date: 20121219
  Receipt Date: 20131218
  Transmission Date: 20140711
  Serious: Yes (Hospitalization, Other)
  Sender: FDA-Public Use
  Company Number: PHHY2012CA097373

PATIENT
  Sex: Female

DRUGS (7)
  1. ACLASTA [Suspect]
     Indication: OSTEOPOROSIS POSTMENOPAUSAL
     Dosage: UNK UKN, UNK
     Route: 042
     Dates: start: 20111018
  2. ACLASTA [Suspect]
     Dosage: UNK UKN, UNK
     Route: 042
     Dates: start: 20121024
  3. ACLASTA [Suspect]
     Dosage: UNK UKN, UNK
     Route: 042
     Dates: start: 20131004
  4. FERROUS SULFATE [Concomitant]
     Dosage: UNK UKN, UNK
  5. ATORVASTATIN [Concomitant]
     Dosage: UNK UKN, UNK
  6. COVERSYL                                /BEL/ [Concomitant]
     Dosage: UNK UKN, UNK
  7. CITALOPRAM [Concomitant]
     Dosage: UNK UKN, UNK

REACTIONS (5)
  - Cerebrovascular accident [Unknown]
  - Gastric mucosal lesion [Unknown]
  - Gastric haemorrhage [Unknown]
  - Malaise [Unknown]
  - Anaemia [Not Recovered/Not Resolved]
